FAERS Safety Report 9927756 (Version 1)
Quarter: 2014Q1

REPORT INFORMATION
  Report Type: Spontaneous
  Country: FR (occurrence: FR)
  Receive Date: 20140227
  Receipt Date: 20140227
  Transmission Date: 20141002
  Serious: Yes (Hospitalization, Other)
  Sender: FDA-Public Use
  Company Number: FR-JNJFOC-20140213449

PATIENT
  Age: 75 Year
  Sex: Male

DRUGS (4)
  1. ACTIFED [Suspect]
     Indication: NASOPHARYNGITIS
     Route: 048
     Dates: start: 20140120, end: 20140122
  2. ACTIFED [Suspect]
     Indication: NASOPHARYNGITIS
     Route: 048
     Dates: start: 20140120, end: 20140122
  3. CANDESARTAN [Concomitant]
     Indication: HYPERTENSION
     Route: 065
  4. MANIDIPINE [Concomitant]
     Indication: HYPERTENSION
     Route: 065

REACTIONS (1)
  - Cerebrovascular accident [Recovered/Resolved with Sequelae]
